FAERS Safety Report 8888235 (Version 4)
Quarter: 2013Q4

REPORT INFORMATION
  Report Type: Report from Study
  Country: CA (occurrence: CA)
  Receive Date: 20121106
  Receipt Date: 20131025
  Transmission Date: 20140711
  Serious: Yes (Life-Threatening, Hospitalization, Other)
  Sender: FDA-Public Use
  Company Number: CA-JNJFOC-20121011068

PATIENT
  Age: 42 Year
  Sex: Female
  Weight: 86.18 kg

DRUGS (5)
  1. REMICADE [Suspect]
     Indication: PSORIASIS
     Route: 042
     Dates: start: 20130510
  2. REMICADE [Suspect]
     Indication: PSORIASIS
     Dosage: 5 MG/KG, RECEIVED 5 INFUSIONS
     Route: 042
     Dates: start: 20100714
  3. REMICADE [Suspect]
     Indication: PSORIASIS
     Route: 042
     Dates: end: 2012
  4. REMICADE [Suspect]
     Indication: PSORIASIS
     Route: 042
     Dates: start: 20101004, end: 20121030
  5. REMICADE [Suspect]
     Indication: PSORIASIS
     Route: 042
     Dates: start: 201005

REACTIONS (1)
  - Breast cancer [Unknown]
